FAERS Safety Report 6873624-X (Version None)
Quarter: 2010Q3

REPORT INFORMATION
  Report Type: 
  Country: None (occurrence: None)
  Receive Date: 20100723
  Receipt Date: 20090522
  Transmission Date: 20110219
  Serious: Yes (Other)
  Sender: FDA-Public Use
  Company Number: US-PFIZER INC-2009169192

PATIENT
  Sex: Female
  Weight: 81.633 kg

DRUGS (6)
  1. CHANTIX [Suspect]
     Indication: SMOKING CESSATION THERAPY
     Dosage: .5 MG, 1X/DAY
     Dates: start: 20090121, end: 20090201
  2. CHANTIX [Suspect]
     Dosage: 1 MG, 2X/DAY
     Dates: start: 20090201, end: 20090205
  3. LYRICA [Concomitant]
     Indication: FIBROMYALGIA
     Dosage: UNK
  4. CARDIZEM [Concomitant]
     Dosage: UNK
  5. WARFARIN SODIUM [Concomitant]
     Dosage: UNK
  6. INSULIN [Concomitant]
     Indication: DIABETES MELLITUS
     Dosage: UNK

REACTIONS (6)
  - ABNORMAL DREAMS [None]
  - ADVERSE EVENT [None]
  - DEPRESSION [None]
  - DRUG INEFFECTIVE [None]
  - FEELING ABNORMAL [None]
  - SUICIDE ATTEMPT [None]
